FAERS Safety Report 11842707 (Version 3)
Quarter: 2020Q3

REPORT INFORMATION
  Report Type: Spontaneous
  Country: ES (occurrence: ES)
  Receive Date: 20151216
  Receipt Date: 20200804
  Transmission Date: 20201102
  Serious: Yes (Other)
  Sender: FDA-Public Use
  Company Number: ES-ASTRAZENECA-2015SF23834

PATIENT
  Age: 74 Year
  Sex: Female

DRUGS (19)
  1. METHOTREXATE. [Interacting]
     Active Substance: METHOTREXATE
     Route: 065
  2. CLORAZEPATE [Interacting]
     Active Substance: CLORAZEPATE DIPOTASSIUM
     Route: 065
  3. DIGOXIN. [Interacting]
     Active Substance: DIGOXIN
     Route: 065
  4. PREDNISONE. [Interacting]
     Active Substance: PREDNISONE
     Indication: ERYTHRODERMIC PSORIASIS
     Route: 048
  5. RAMIPRIL. [Interacting]
     Active Substance: RAMIPRIL
     Route: 048
  6. ACENOCOUMAROL [Interacting]
     Active Substance: ACENOCOUMAROL
     Route: 065
  7. BISOPROLOL [Interacting]
     Active Substance: BISOPROLOL
     Route: 065
  8. FUROSEMIDE. [Interacting]
     Active Substance: FUROSEMIDE
     Route: 065
  9. INSULIN [Interacting]
     Active Substance: INSULIN NOS
     Route: 065
  10. METHYLPREDNISOLONE ACEPONATE [Interacting]
     Active Substance: METHYLPREDNISOLONE ACEPONATE
     Route: 065
  11. HYDROCHLOROTHIAZIDE. [Interacting]
     Active Substance: HYDROCHLOROTHIAZIDE
     Route: 065
  12. HYDROCORTISONE. [Interacting]
     Active Substance: HYDROCORTISONE
     Indication: ERYTHRODERMIC PSORIASIS
     Route: 061
  13. CLOBETASOL [Interacting]
     Active Substance: CLOBETASOL
     Route: 061
  14. DILTIAZEM. [Interacting]
     Active Substance: DILTIAZEM
     Route: 065
  15. ALPRAZOLAM. [Interacting]
     Active Substance: ALPRAZOLAM
     Indication: EUPHORIC MOOD
     Route: 065
  16. ENOXAPARIN [Interacting]
     Active Substance: ENOXAPARIN
     Route: 065
  17. FOLIC ACID. [Interacting]
     Active Substance: FOLIC ACID
     Route: 065
  18. OMEPRAZOLE. [Suspect]
     Active Substance: OMEPRAZOLE
     Route: 048
  19. ALPRAZOLAM. [Interacting]
     Active Substance: ALPRAZOLAM
     Indication: DISORIENTATION
     Route: 065

REACTIONS (6)
  - Erythrodermic psoriasis [Recovered/Resolved]
  - Drug interaction [Unknown]
  - Toxicity to various agents [Recovered/Resolved]
  - Disorientation [Recovered/Resolved]
  - Transaminases increased [Recovered/Resolved]
  - Euphoric mood [Recovered/Resolved]
